FAERS Safety Report 7084171-7 (Version None)
Quarter: 2010Q4

REPORT INFORMATION
  Report Type: 
  Country: None (occurrence: None)
  Receive Date: 20101104
  Receipt Date: 20090311
  Transmission Date: 20110411
  Serious: Yes (Other)
  Sender: FDA-Public Use
  Company Number: US-BAYER-201039378NA

PATIENT
  Age: 50 Year
  Sex: Male

DRUGS (4)
  1. BETASERON [Suspect]
     Indication: MULTIPLE SCLEROSIS
     Dosage: TOTAL DAILY DOSE: 2 MIU
     Route: 058
     Dates: start: 20090204
  2. BETASERON [Suspect]
     Route: 058
     Dates: end: 20090225
  3. BETASERON [Suspect]
     Route: 058
     Dates: start: 20050708, end: 20061124
  4. BETASERON [Suspect]
     Route: 058
     Dates: start: 19990826, end: 20050418

REACTIONS (6)
  - HALLUCINATION [None]
  - INFLUENZA LIKE ILLNESS [None]
  - INJECTION SITE MASS [None]
  - INJECTION SITE PAIN [None]
  - PYREXIA [None]
  - TREMOR [None]
